FAERS Safety Report 7092477-0 (Version None)
Quarter: 2010Q4

REPORT INFORMATION
  Report Type: 
  Country: None (occurrence: None)
  Receive Date: 20101108
  Receipt Date: 20101108
  Transmission Date: 20110411
  Serious: Yes (Other)
  Sender: FDA-Public Use
  Company Number: None

PATIENT
  Age: 72 Year
  Sex: Male
  Weight: 79.1 kg

DRUGS (2)
  1. TOPIRAMATE [Suspect]
     Indication: BACK DISORDER
     Dosage: 1 TOPIRAMATE  24MG TAB ONLY ONE ONLY TAKEN ONCE ON FRIDAY OCTOBER 29
     Dates: start: 20101029
  2. TOPIRAMATE [Suspect]
     Indication: NERVOUS SYSTEM DISORDER
     Dosage: 1 TOPIRAMATE  24MG TAB ONLY ONE ONLY TAKEN ONCE ON FRIDAY OCTOBER 29
     Dates: start: 20101029

REACTIONS (12)
  - AGITATION [None]
  - ASTHENIA [None]
  - BODY TEMPERATURE INCREASED [None]
  - DIZZINESS [None]
  - DRY SKIN [None]
  - FEELING COLD [None]
  - HEADACHE [None]
  - HEART RATE INCREASED [None]
  - INSOMNIA [None]
  - SKIN DISCOLOURATION [None]
  - SKIN WARM [None]
  - TREMOR [None]
